FAERS Safety Report 5877606-6 (Version None)
Quarter: 2008Q3

REPORT INFORMATION
  Report Type: 
  Country: None (occurrence: None)
  Receive Date: 20080911
  Receipt Date: 20080908
  Transmission Date: 20090109
  Serious: Yes (Death)
  Sender: FDA-Public Use
  Company Number: CA-ASTRAZENECA-2008UW18566

PATIENT
  Age: 45 Year
  Sex: Female

DRUGS (4)
  1. SEROQUEL [Suspect]
     Route: 048
     Dates: start: 20050814, end: 20050827
  2. SEROQUEL [Suspect]
     Route: 048
     Dates: start: 20050827, end: 20050828
  3. SEROQUEL [Suspect]
     Route: 048
     Dates: start: 20050829, end: 20050901
  4. SEROQUEL [Suspect]
     Route: 048
     Dates: start: 20050902

REACTIONS (1)
  - DEATH [None]
